FAERS Safety Report 10203437 (Version 1)
Quarter: 2014Q2

REPORT INFORMATION
  Report Type: Spontaneous
  Country: US (occurrence: None)
  Receive Date: 20140523
  Receipt Date: 20140523
  Transmission Date: 20141212
  Serious: Yes (Hospitalization)
  Sender: FDA-Public Use
  Company Number: UNT-2014-000392

PATIENT
  Age: 26 Year
  Sex: Female

DRUGS (2)
  1. REMODULIN [Suspect]
     Indication: PULMONARY ARTERIAL HYPERTENSION
     Dosage: 0.027 UG/KG/MIN, Q72H, SUBCUTANEOUS
     Route: 058
     Dates: start: 20130913
  2. REMODULIN [Suspect]
     Indication: CEREBRAL ARTERY OCCLUSION
     Dosage: 0.027 UG/KG/MIN, Q72H, SUBCUTANEOUS
     Route: 058
     Dates: start: 20130913

REACTIONS (2)
  - Pericardial effusion [None]
  - Pleural effusion [None]
